FAERS Safety Report 17257837 (Version 1)
Quarter: 2020Q1

REPORT INFORMATION
  Report Type: Spontaneous
  Country: US (occurrence: US)
  Receive Date: 20200110
  Receipt Date: 20200110
  Transmission Date: 20200409
  Serious: No
  Sender: FDA-Public Use
  Company Number: US-PERRIGO-19US004884

PATIENT
  Age: 7 Month
  Sex: Female
  Weight: 6.35 kg

DRUGS (1)
  1. IBUPROFEN. [Suspect]
     Active Substance: IBUPROFEN
     Indication: PYREXIA
     Dosage: 50 MG, SINGLE
     Route: 048
     Dates: start: 20190412, end: 20190412

REACTIONS (2)
  - Expired product administered [Recovered/Resolved]
  - Drug administered in wrong device [Recovered/Resolved]

NARRATIVE: CASE EVENT DATE: 20190412
